FAERS Safety Report 7829680-5 (Version None)
Quarter: 2011Q4

REPORT INFORMATION
  Report Type: 
  Country: None (occurrence: None)
  Receive Date: 20111021
  Receipt Date: 20111011
  Transmission Date: 20120403
  Serious: Yes (Other)
  Sender: FDA-Public Use
  Company Number: US-PAR PHARMACEUTICAL, INC-2011SCPR003290

PATIENT

DRUGS (7)
  1. LEVETIRACETAM [Suspect]
     Indication: CONVULSION
     Dosage: 1000 MG, BID
     Route: 065
  2. LEVETIRACETAM [Suspect]
     Dosage: 500 MG Q12H
     Route: 065
  3. PHENYTOIN [Concomitant]
     Indication: PROPHYLAXIS
     Dosage: UNK, UNKNOWN
     Route: 065
  4. LEVETIRACETAM [Suspect]
     Dosage: 250 MG Q12H
     Route: 065
  5. LEVETIRACETAM [Suspect]
     Dosage: 750 MG Q12H
     Route: 065
  6. PREGABALIN [Concomitant]
     Indication: CONVULSION
     Dosage: 300 MG, BID
     Route: 065
  7. TEMOZOLOMIDE [Concomitant]
     Indication: BRAIN NEOPLASM MALIGNANT
     Dosage: UNK, UNKNOWN
     Route: 065

REACTIONS (1)
  - DRUG ERUPTION [None]
